FAERS Safety Report 9835679 (Version 2)
Quarter: 2014Q1

REPORT INFORMATION
  Report Type: Spontaneous
  Country: GB (occurrence: GB)
  Receive Date: 20140122
  Receipt Date: 20140318
  Transmission Date: 20141002
  Serious: Yes (Hospitalization)
  Sender: FDA-Public Use
  Company Number: PHHY2014GB006427

PATIENT
  Age: 40 Year
  Sex: Male

DRUGS (6)
  1. PHENOXYMETHYLPENICILLIN (= PENICILLIN V) [Suspect]
     Indication: OROPHARYNGEAL PAIN
  2. PHENOXYMETHYLPENICILLIN (= PENICILLIN V) [Suspect]
     Indication: PYREXIA
  3. BENZYLPENICILLIN [Suspect]
     Indication: OROPHARYNGEAL PAIN
     Dosage: 1.2 MG, QID
     Route: 042
  4. BENZYLPENICILLIN [Suspect]
     Indication: PYREXIA
  5. DEXAMETHASONE [Concomitant]
     Dosage: 8 MG, UNK
     Route: 042
  6. CLARITHROMYCIN [Concomitant]

REACTIONS (18)
  - Tonsillitis [Recovered/Resolved]
  - Tonsillar hypertrophy [Recovered/Resolved]
  - Tonsillar inflammation [Recovered/Resolved]
  - Odynophagia [Recovered/Resolved]
  - Drug eruption [Recovered/Resolved]
  - Rash macular [Recovered/Resolved]
  - Rash [Recovered/Resolved]
  - Rash generalised [Recovered/Resolved]
  - Skin necrosis [Recovered/Resolved]
  - Pyrexia [Recovered/Resolved]
  - Neutrophilia [Recovered/Resolved]
  - Skin oedema [Recovered/Resolved]
  - Hyperaemia [Recovered/Resolved]
  - Rash pustular [Recovered/Resolved]
  - Lymphohistiocytosis [Recovered/Resolved]
  - Xerosis [Not Recovered/Not Resolved]
  - Pain [Recovered/Resolved]
  - Dysphagia [Recovered/Resolved]
